FAERS Safety Report 4307682-3 (Version None)
Quarter: 2004Q1

REPORT INFORMATION
  Report Type: 
  Country: None (occurrence: None)
  Receive Date: 20040226
  Receipt Date: 20040216
  Transmission Date: 20041129
  Serious: Yes (Hospitalization)
  Sender: FDA-Public Use
  Company Number: CHPA2004US01155

PATIENT
  Age: 72 Year
  Sex: Male
  Weight: 79.4 kg

DRUGS (11)
  1. NICOTINE [Suspect]
     Indication: SMOKING CESSATION THERAPY
     Dosage: 14 MG, QD, TRANSDERMAL
     Route: 062
     Dates: start: 20040201, end: 20040216
  2. ALDACTAZIDE [Concomitant]
  3. VERAPAMIL [Concomitant]
  4. PRAZOSIN GITS [Concomitant]
  5. DURATUSS [Concomitant]
  6. THEOPHYLLINE [Concomitant]
  7. LOVASTATIN [Concomitant]
  8. SYNTHROID [Concomitant]
  9. ACIPHEX [Concomitant]
  10. ASPIRIN [Concomitant]
  11. OTHER ANTI-ASTHMATICS, INHALANTS) [Concomitant]

REACTIONS (4)
  - APPLICATION SITE DERMATITIS [None]
  - APPLICATION SITE PRURITUS [None]
  - BLOOD SODIUM DECREASED [None]
  - COUGH [None]
